FAERS Safety Report 8168619-2 (Version None)
Quarter: 2012Q1

REPORT INFORMATION
  Report Type: 
  Country: None (occurrence: None)
  Receive Date: 20120227
  Receipt Date: 20120223
  Transmission Date: 20120608
  Serious: No
  Sender: FDA-Public Use
  Company Number: US-BAYER-2012-018795

PATIENT
  Sex: Male

DRUGS (4)
  1. XANAX [Concomitant]
     Dosage: 2 MG TABLET
  2. BETASERON [Suspect]
     Dosage: 0.25 MG, QOD
     Route: 058
  3. AMBIEN [Concomitant]
     Dosage: 10 MG TABLET
  4. ACETAMINOPHEN [Concomitant]
     Dosage: 500 MG TABLET

REACTIONS (1)
  - PARAESTHESIA [None]
